FAERS Safety Report 15984068 (Version 1)
Quarter: 2019Q1

REPORT INFORMATION
  Report Type: Report from Study
  Country: None (occurrence: RO)
  Receive Date: 20190219
  Receipt Date: 20190219
  Transmission Date: 20190418
  Serious: Yes (Other)
  Sender: FDA-Public Use
  Company Number: RO-ABBVIE-19K-135-2668875-00

PATIENT
  Sex: Male

DRUGS (13)
  1. TANDESAR [Concomitant]
     Indication: CARDIAC FIBRILLATION
     Route: 048
     Dates: start: 2017
  2. HUMIRA [Suspect]
     Active Substance: ADALIMUMAB
     Indication: PSORIASIS
     Route: 058
     Dates: start: 20170615
  3. TEOTARD [Concomitant]
     Active Substance: THEOPHYLLINE ANHYDROUS
     Indication: HEART RATE INCREASED
  4. TANDESAR [Concomitant]
     Indication: ATRIAL FLUTTER
  5. DIUREX (HYDROCHLOROTHIAZIDE) [Concomitant]
     Active Substance: HYDROCHLOROTHIAZIDE
     Indication: CARDIAC FIBRILLATION
     Route: 048
     Dates: start: 2017
  6. DIUREX (HYDROCHLOROTHIAZIDE) [Concomitant]
     Active Substance: HYDROCHLOROTHIAZIDE
     Indication: ATRIAL FLUTTER
  7. TEOTARD [Concomitant]
     Active Substance: THEOPHYLLINE ANHYDROUS
     Indication: CARDIAC FIBRILLATION
     Route: 048
     Dates: start: 2017
  8. ASPENTER [Concomitant]
     Active Substance: ASPIRIN
     Indication: HEART RATE INCREASED
  9. DIUREX (HYDROCHLOROTHIAZIDE) [Concomitant]
     Active Substance: HYDROCHLOROTHIAZIDE
     Indication: HEART RATE INCREASED
  10. ASPENTER [Concomitant]
     Active Substance: ASPIRIN
     Indication: ATRIAL FLUTTER
  11. ASPENTER [Concomitant]
     Active Substance: ASPIRIN
     Indication: CARDIAC FIBRILLATION
     Route: 048
     Dates: start: 2017
  12. TEOTARD [Concomitant]
     Active Substance: THEOPHYLLINE ANHYDROUS
     Indication: ATRIAL FLUTTER
  13. TANDESAR [Concomitant]
     Indication: HEART RATE INCREASED

REACTIONS (6)
  - Arthralgia [Not Recovered/Not Resolved]
  - Hepatitis B [Not Recovered/Not Resolved]
  - Drug ineffective [Not Recovered/Not Resolved]
  - Mobility decreased [Not Recovered/Not Resolved]
  - Libido decreased [Not Recovered/Not Resolved]
  - Skin hypertrophy [Not Recovered/Not Resolved]

NARRATIVE: CASE EVENT DATE: 2017
